FAERS Safety Report 6439290-2 (Version None)
Quarter: 2009Q4

REPORT INFORMATION
  Report Type: 
  Country: None (occurrence: None)
  Receive Date: 20091113
  Receipt Date: 20091102
  Transmission Date: 20100525
  Serious: Yes (Hospitalization, Other)
  Sender: FDA-Public Use
  Company Number: AR-BAYER-200923718LA

PATIENT
  Sex: Female

DRUGS (1)
  1. MIRENA [Suspect]
     Indication: DRUG USE FOR UNKNOWN INDICATION
     Dosage: FREQUENCY: CONTINUOUS
     Route: 015
     Dates: start: 20080501, end: 20091101

REACTIONS (4)
  - ACUTE ABDOMEN [None]
  - ECTOPIC PREGNANCY WITH INTRAUTERINE DEVICE [None]
  - INTRA-ABDOMINAL HAEMORRHAGE [None]
  - UTERINE PERFORATION [None]
